FAERS Safety Report 6946058-7 (Version None)
Quarter: 2010Q3

REPORT INFORMATION
  Report Type: 
  Country: None (occurrence: None)
  Receive Date: 20100827
  Receipt Date: 20090811
  Transmission Date: 20110219
  Serious: No
  Sender: FDA-Public Use
  Company Number: A0798884A

PATIENT
  Age: 82 Year
  Sex: Male

DRUGS (1)
  1. ZOVIRAX [Suspect]
     Indication: HERPES ZOSTER
     Dosage: 5PCT UNKNOWN
     Route: 065

REACTIONS (2)
  - HERPES ZOSTER [None]
  - WOUND SECRETION [None]
